FAERS Safety Report 4497896-4 (Version None)
Quarter: 2004Q4

REPORT INFORMATION
  Report Type: 
  Country: None (occurrence: None)
  Receive Date: 20041105
  Receipt Date: 20041025
  Transmission Date: 20050328
  Serious: Yes (Other)
  Sender: FDA-Public Use
  Company Number: 2004084794

PATIENT
  Sex: Female

DRUGS (3)
  1. NEURONTIN [Suspect]
     Indication: ILL-DEFINED DISORDER
  2. ZOLOFT [Suspect]
     Indication: ILL-DEFINED DISORDER
  3. PROCARDIA [Suspect]
     Indication: ILL-DEFINED DISORDER

REACTIONS (4)
  - DIABETES MELLITUS [None]
  - DOUBLE VESSEL BYPASS GRAFT [None]
  - LIMB OPERATION [None]
  - NEUROPATHY PERIPHERAL [None]
